FAERS Safety Report 20422013 (Version 1)
Quarter: 2022Q1

REPORT INFORMATION
  Report Type: Report from Study
  Country: US (occurrence: US)
  Receive Date: 20220203
  Receipt Date: 20220203
  Transmission Date: 20220424
  Serious: Yes (Hospitalization)
  Sender: FDA-Public Use
  Company Number: US-BAXTER-2022BAX001641

PATIENT
  Age: 5 Month
  Sex: Male
  Weight: 6.6 kg

DRUGS (8)
  1. CYCLOPHOSPHAMIDE [Suspect]
     Active Substance: CYCLOPHOSPHAMIDE
     Indication: Embryonal rhabdomyosarcoma
     Route: 042
     Dates: start: 20160831
  2. CAMPTOSAR [Suspect]
     Active Substance: IRINOTECAN HYDROCHLORIDE
     Indication: Embryonal rhabdomyosarcoma
     Route: 042
     Dates: start: 20160831
  3. CAMPTOSAR [Suspect]
     Active Substance: IRINOTECAN HYDROCHLORIDE
     Dosage: LAST ADMINISTERED DATE BEFORE EVENT ONSET
     Route: 042
     Dates: start: 20161105
  4. TEMSIROLIMUS [Suspect]
     Active Substance: TEMSIROLIMUS
     Indication: Embryonal rhabdomyosarcoma
     Route: 042
     Dates: start: 20160831
  5. TEMSIROLIMUS [Suspect]
     Active Substance: TEMSIROLIMUS
     Dosage: LAST ADMINISTERED DATE BEFORE EVENT ONSET
     Route: 042
     Dates: start: 20161102
  6. VINCRISTINE SULFATE [Suspect]
     Active Substance: VINCRISTINE SULFATE
     Indication: Embryonal rhabdomyosarcoma
     Route: 065
     Dates: start: 20160831
  7. VINCRISTINE SULFATE [Suspect]
     Active Substance: VINCRISTINE SULFATE
     Dosage: LAST ADMINISTERED DATE BEFORE EVENT ONSET
     Route: 065
     Dates: start: 20161102
  8. DACTINOMYCIN [Suspect]
     Active Substance: DACTINOMYCIN
     Indication: Embryonal rhabdomyosarcoma
     Route: 042
     Dates: start: 20160831

REACTIONS (2)
  - Dehydration [Unknown]
  - Diarrhoea [Unknown]

NARRATIVE: CASE EVENT DATE: 20161102
